FAERS Safety Report 8912505 (Version 1)
Quarter: 2012Q4

REPORT INFORMATION
  Report Type: 
  Country: US (occurrence: US)
  Receive Date: 20121115
  Receipt Date: 20121115
  Transmission Date: 20130627
  Serious: No
  Sender: FDA-Public Use
  Company Number: US-ASTRAZENECA-2012SE83909

PATIENT
  Sex: Male

DRUGS (3)
  1. SEROQUEL XR [Suspect]
     Route: 048
  2. NEURONTIN [Concomitant]
  3. INVEGA [Concomitant]

REACTIONS (3)
  - Drug intolerance [Unknown]
  - Dizziness [Unknown]
  - Sedation [Unknown]
